FAERS Safety Report 14523934 (Version 3)
Quarter: 2018Q3

REPORT INFORMATION
  Report Type: Spontaneous
  Country: US (occurrence: US)
  Receive Date: 20180213
  Receipt Date: 20180920
  Transmission Date: 20181010
  Serious: Yes (Other)
  Sender: FDA-Public Use
  Company Number: US-APOTEX-2017AP022437

PATIENT
  Age: 52 Year
  Sex: Female

DRUGS (6)
  1. PAROXETINE. [Suspect]
     Active Substance: PAROXETINE
     Indication: ANXIETY
  2. PAROXETINE. [Suspect]
     Active Substance: PAROXETINE
     Indication: PANIC ATTACK
  3. PAROXETINE. [Suspect]
     Active Substance: PAROXETINE
     Indication: TACHYPHRENIA
     Dosage: UNK
     Route: 065
  4. PAROXETINE. [Suspect]
     Active Substance: PAROXETINE
     Indication: DEPRESSION
  5. PAROXETINE. [Suspect]
     Active Substance: PAROXETINE
     Indication: FATIGUE
  6. PAROXETINE. [Suspect]
     Active Substance: PAROXETINE
     Indication: OBSESSIVE THOUGHTS

REACTIONS (3)
  - Hyposmia [Recovered/Resolved]
  - Cranial nerve disorder [Recovered/Resolved]
  - Anosmia [Recovered/Resolved]
